FAERS Safety Report 7432832-X (Version None)
Quarter: 2011Q2

REPORT INFORMATION
  Report Type: 
  Country: None (occurrence: None)
  Receive Date: 20110422
  Receipt Date: 20110413
  Transmission Date: 20111010
  Serious: Yes (Other)
  Sender: FDA-Public Use
  Company Number: US-ASTRAZENECA-2011SE21974

PATIENT
  Sex: Female

DRUGS (1)
  1. NEXIUM [Suspect]
     Route: 048

REACTIONS (8)
  - RHEUMATOID ARTHRITIS [None]
  - EYE DISORDER [None]
  - SYSTEMIC LUPUS ERYTHEMATOSUS [None]
  - ANXIETY [None]
  - ASTHMA [None]
  - HYPERTENSION [None]
  - DEPRESSION [None]
  - CHRONIC OBSTRUCTIVE PULMONARY DISEASE [None]
